FAERS Safety Report 20905140 (Version 1)
Quarter: 2022Q2

REPORT INFORMATION
  Report Type: Spontaneous
  Country: TW (occurrence: TW)
  Receive Date: 20220602
  Receipt Date: 20220602
  Transmission Date: 20220720
  Serious: Yes (Hospitalization, Other)
  Sender: FDA-Public Use
  Company Number: TW-BAXTER-2022BAX010553

PATIENT
  Age: 30 Year
  Sex: Female

DRUGS (4)
  1. CYCLOPHOSPHAMIDE [Suspect]
     Active Substance: CYCLOPHOSPHAMIDE
     Indication: Angiocentric lymphoma
     Dosage: 100 MG, 3 CYCLICAL
     Route: 065
  2. DOXORUBICIN [Suspect]
     Active Substance: DOXORUBICIN
     Indication: Angiocentric lymphoma
     Dosage: 60 MG, 3 CYCLICAL
     Route: 065
  3. PREDNISONE [Suspect]
     Active Substance: PREDNISONE
     Indication: Angiocentric lymphoma
     Dosage: 1 MG/KG/DAY; CYCLICAL (1 MG/KG, 3 CYCLICAL)
     Route: 065
  4. VINCRISTINE [Suspect]
     Active Substance: VINCRISTINE
     Indication: Angiocentric lymphoma
     Dosage: 2 MG, 3 CYCLICAL
     Route: 065

REACTIONS (2)
  - Encephalopathy [Not Recovered/Not Resolved]
  - Interleukin level increased [Not Recovered/Not Resolved]
